FAERS Safety Report 9669245 (Version 1)
Quarter: 2013Q4

REPORT INFORMATION
  Report Type: Spontaneous
  Country: US (occurrence: None)
  Receive Date: 20131104
  Receipt Date: 20131104
  Transmission Date: 20140711
  Serious: Yes (Other)
  Sender: FDA-Public Use
  Company Number: None

PATIENT
  Age: 65 Year
  Sex: Male
  Weight: 68.04 kg

DRUGS (1)
  1. ALBUTEROL SULFATE [Suspect]
     Indication: CHRONIC OBSTRUCTIVE PULMONARY DISEASE
     Dosage: 1 EVERY 4HRS AS NEEDED 4 TIMES A DAY
     Route: 055
     Dates: start: 20131015, end: 20131030

REACTIONS (3)
  - Oropharyngeal pain [None]
  - Pyrexia [None]
  - Poor quality drug administered [None]
